FAERS Safety Report 8436003 (Version 5)
Quarter: 2012Q4

REPORT INFORMATION
  Report Type: Report from Study
  Country: JP (occurrence: JP)
  Receive Date: 20120301
  Receipt Date: 20121227
  Transmission Date: 20130627
  Serious: Yes (Other)
  Sender: FDA-Public Use
  Company Number: JP-VERTEX PHARMACEUTICALS INC.-AE-2012-002821

PATIENT
  Age: 56 Year
  Sex: Female

DRUGS (12)
  1. VX-950 (TELAPREVIR) [Suspect]
     Indication: CHRONIC HEPATITIS C
     Dosage: 2250 mg, qd
     Route: 048
     Dates: start: 20120110, end: 20120403
  2. PEGINTERFERON ALFA-2B [Suspect]
     Indication: CHRONIC HEPATITIS C
     Dosage: 1.5 ?g/kg, qw
     Route: 058
     Dates: start: 20120110, end: 20120619
  3. REBETOL [Suspect]
     Indication: CHRONIC HEPATITIS C
     Dosage: 600 mg, qd
     Route: 048
     Dates: start: 20120110, end: 20120123
  4. REBETOL [Suspect]
     Dosage: 200 mg, qd
     Route: 048
     Dates: start: 20120124, end: 20120417
  5. REBETOL [Suspect]
     Dosage: 400 mg, qd
     Route: 048
     Dates: start: 20120418, end: 20120626
  6. PAROTIN                            /00365501/ [Concomitant]
     Dosage: 60 mg, qd
     Route: 048
  7. NEUROTROPIN                        /06251301/ [Concomitant]
     Dosage: 4 DF, qd
     Route: 048
  8. CLARITIN                           /00917501/ [Concomitant]
     Dosage: 10 mg, qd
     Route: 048
     Dates: start: 20120214, end: 20120612
  9. PL [Concomitant]
     Dosage: 3 g, qd
     Route: 048
     Dates: start: 20120417, end: 20120423
  10. LOXONIN [Concomitant]
     Dosage: 180 mg, qd
     Route: 048
     Dates: start: 20120417, end: 20120423
  11. METHADERM [Concomitant]
     Route: 062
     Dates: start: 20120612, end: 20120626
  12. BONALFA [Concomitant]
     Route: 062
     Dates: start: 20120612, end: 20120626

REACTIONS (1)
  - Neutrophil count decreased [Recovered/Resolved]
